FAERS Safety Report 9399228 (Version 1)
Quarter: 2013Q3

REPORT INFORMATION
  Report Type: Spontaneous
  Country: JP (occurrence: None)
  Receive Date: 20130709
  Receipt Date: 20130709
  Transmission Date: 20140515
  Serious: Yes (Hospitalization)
  Sender: FDA-Public Use
  Company Number: 2013P1010831

PATIENT
  Age: 30 Year
  Sex: Male

DRUGS (13)
  1. LEVOFLOXACIN [Suspect]
     Indication: URINARY TRACT INFECTION
  2. VALPROATE SODIUM [Suspect]
  3. ASPIRIN [Suspect]
  4. ALLOPURINOL [Suspect]
     Indication: HYPERURICAEMIA
  5. WARFARIN [Suspect]
     Indication: CONGESTIVE CARDIOMYOPATHY
  6. DIGOXIN [Concomitant]
  7. PIMOBENDAN [Concomitant]
  8. ATENOLOL [Concomitant]
  9. GLIMEPIRIDE [Concomitant]
  10. VOGLIBOSE [Concomitant]
  11. MILNACIPRAN HYDROCHLORIDE [Concomitant]
  12. FLUVOXAMINE MALEATE [Concomitant]
  13. RISPERIDONE [Concomitant]

REACTIONS (9)
  - Renal failure acute [None]
  - Coagulopathy [None]
  - Hypovolaemic shock [None]
  - Haemorrhage [None]
  - Haemoglobin decreased [None]
  - Haematocrit decreased [None]
  - Haematuria [None]
  - Haematoma [None]
  - Drug interaction [None]
